FAERS Safety Report 4420684-1 (Version None)
Quarter: 2004Q3

REPORT INFORMATION
  Report Type: 
  Country: None (occurrence: None)
  Receive Date: 20040809
  Receipt Date: 20040423
  Transmission Date: 20050211
  Serious: No
  Sender: FDA-Public Use
  Company Number: US-GLAXOSMITHKLINE-A0508331A

PATIENT
  Sex: Female

DRUGS (7)
  1. PAXIL [Suspect]
     Indication: DEPRESSION
     Dosage: 20MG PER DAY
     Route: 048
  2. PAXIL CR [Suspect]
     Indication: DEPRESSION
     Route: 048
  3. DIOVAN [Concomitant]
  4. TRANXENE [Concomitant]
  5. LIPITOR [Concomitant]
  6. SEREVENT [Concomitant]
  7. BUSPAR [Concomitant]

REACTIONS (2)
  - DRUG WITHDRAWAL SYNDROME [None]
  - HYPOAESTHESIA [None]
